FAERS Safety Report 12672547 (Version 1)
Quarter: 2016Q3

REPORT INFORMATION
  Report Type: Spontaneous
  Country: US (occurrence: US)
  Receive Date: 20160822
  Receipt Date: 20160822
  Transmission Date: 20161109
  Serious: No
  Sender: FDA-Public Use
  Company Number: US-JNJFOC-20160815281

PATIENT
  Sex: Female
  Weight: 79.38 kg

DRUGS (12)
  1. TURMERIC [Concomitant]
     Active Substance: TURMERIC
     Indication: CARDIAC DISORDER
     Dosage: 2 TO 3 YEARS
     Route: 065
  2. CARVEDILOL. [Concomitant]
     Active Substance: CARVEDILOL
     Indication: HYPERTENSION
     Dosage: 2 TO 3 YEARS
     Route: 065
  3. AZO [Concomitant]
     Active Substance: PHENAZOPYRIDINE HYDROCHLORIDE
     Indication: PROPHYLAXIS
     Dosage: 2 TO 3 YEARS
     Route: 065
  4. TURMERIC [Concomitant]
     Active Substance: TURMERIC
     Indication: NEOPLASM MALIGNANT
     Dosage: 2 TO 3 YEARS
     Route: 065
  5. MENS ROGAINE EXTRA STRENGTH [Suspect]
     Active Substance: MINOXIDIL
     Indication: ALOPECIA
     Route: 061
     Dates: start: 2016
  6. ALLOPURINOL. [Concomitant]
     Active Substance: ALLOPURINOL
     Indication: GOUT
     Dosage: 1 YEAR
     Route: 065
  7. CALCIUM W/IRON [Concomitant]
     Indication: ROUTINE HEALTH MAINTENANCE
     Route: 065
  8. AZO [Concomitant]
     Active Substance: PHENAZOPYRIDINE HYDROCHLORIDE
     Indication: INFECTION PROPHYLAXIS
     Dosage: 2 TO 3 YEARS
     Route: 065
  9. MENS ROGAINE EXTRA STRENGTH [Suspect]
     Active Substance: MINOXIDIL
     Route: 061
  10. CRESTOR [Concomitant]
     Active Substance: ROSUVASTATIN CALCIUM
     Indication: BLOOD CHOLESTEROL INCREASED
     Dosage: 2 TO 3 YEARS
     Route: 065
  11. DIOVAN [Concomitant]
     Active Substance: VALSARTAN
     Indication: DIURETIC THERAPY
     Dosage: 2 TO 3 YEARS
     Route: 065
  12. BIOTIN [Concomitant]
     Active Substance: BIOTIN
     Indication: NUTRITIONAL SUPPLEMENTATION
     Route: 065

REACTIONS (3)
  - Hair texture abnormal [Unknown]
  - Off label use [Unknown]
  - Product use issue [Unknown]

NARRATIVE: CASE EVENT DATE: 2016
